FAERS Safety Report 8333896-1 (Version None)
Quarter: 2012Q2

REPORT INFORMATION
  Report Type: 
  Country: None (occurrence: None)
  Receive Date: 20120503
  Receipt Date: 20120426
  Transmission Date: 20120825
  Serious: Yes (Hospitalization)
  Sender: FDA-Public Use
  Company Number: US-SANOFI-AVENTIS-2012SA028929

PATIENT
  Age: 70 Year
  Sex: Male

DRUGS (2)
  1. MULTAQ [Suspect]
     Route: 048
     Dates: end: 20120401
  2. VICODIN [Suspect]
     Route: 065

REACTIONS (3)
  - MENTAL STATUS CHANGES [None]
  - DEHYDRATION [None]
  - RENAL FAILURE [None]
